FAERS Safety Report 8273193-6 (Version None)
Quarter: 2012Q2

REPORT INFORMATION
  Report Type: 
  Country: None (occurrence: None)
  Receive Date: 20120411
  Receipt Date: 20120405
  Transmission Date: 20120825
  Serious: Yes (Death, Hospitalization, Disabling, Other)
  Sender: FDA-Public Use
  Company Number: US-CELGENEUS-163-21880-10072251

PATIENT
  Sex: Male

DRUGS (60)
  1. VELCADE [Suspect]
     Route: 065
     Dates: start: 20100712
  2. VELCADE [Suspect]
     Route: 065
     Dates: start: 20100809
  3. VELCADE [Suspect]
     Route: 065
     Dates: start: 20100826
  4. VELCADE [Suspect]
     Route: 065
     Dates: start: 20101021
  5. LORTAB [Concomitant]
     Indication: PAIN
     Dosage: 10/500 MG
     Route: 065
  6. KLOR-CON [Concomitant]
     Dosage: 20 MILLIEQUIVALENTS
     Route: 048
  7. ALKERAN [Concomitant]
     Dosage: 5 TABLET
     Route: 065
  8. PREDNISONE [Concomitant]
     Dosage: 7 TABLET
     Route: 048
  9. NICODERM [Concomitant]
     Route: 062
  10. EUCERIN [Concomitant]
     Dosage: 120 GRAM
     Route: 065
  11. VELCADE [Suspect]
     Indication: MULTIPLE MYELOMA
     Route: 065
     Dates: start: 20100621
  12. VELCADE [Suspect]
     Route: 065
     Dates: start: 20100805
  13. VELCADE [Suspect]
     Route: 065
     Dates: start: 20100830
  14. VELCADE [Suspect]
     Route: 065
     Dates: start: 20101025
  15. SIMETHICONE [Concomitant]
     Dosage: 80 MILLIGRAM
     Route: 065
  16. MULTI-VITAMINS [Concomitant]
     Dosage: 1 TABLET
     Route: 048
  17. CHOLESTYRAMINE [Concomitant]
     Dosage: 4 GRAM
     Route: 048
  18. VELCADE [Suspect]
     Route: 065
     Dates: start: 20100624
  19. VELCADE [Suspect]
     Route: 065
     Dates: start: 20100715
  20. VELCADE [Suspect]
     Route: 065
     Dates: start: 20100802
  21. NEURONTIN [Concomitant]
     Dosage: 100 MILLIGRAM
     Route: 065
  22. KEPPRA [Concomitant]
     Dosage: 500 MILLIGRAM
     Route: 048
  23. COUMADIN [Concomitant]
     Dosage: 7.5 MILLIGRAM
     Route: 048
     Dates: start: 20091110
  24. VELCADE [Suspect]
     Route: 065
     Dates: start: 20100701
  25. VELCADE [Suspect]
     Route: 065
     Dates: start: 20100719
  26. VELCADE [Suspect]
     Route: 065
     Dates: start: 20100812
  27. VELCADE [Suspect]
     Route: 065
     Dates: start: 20101007
  28. GABAPENTIN [Concomitant]
     Dosage: 800 MILLIGRAM
     Route: 048
  29. GABAPENTIN [Concomitant]
     Dosage: 600 MILLIGRAM
     Route: 048
  30. PROMETHAZINE HCL [Concomitant]
     Indication: NAUSEA
     Dosage: 25 MILLIGRAM
     Route: 048
  31. HYDROXYZINE PAMOATE [Concomitant]
     Indication: ANXIETY
     Dosage: 25 MILLIGRAM
     Route: 065
  32. TEMAZEPAM [Concomitant]
     Dosage: 30 MILLIGRAM
     Route: 065
  33. LIDODERM [Concomitant]
     Indication: PAIN
     Dosage: 5 PERCENT
     Route: 065
  34. BENADRYL [Concomitant]
     Dosage: 25 MILLIGRAM
     Route: 048
  35. FIORICET [Concomitant]
     Route: 065
  36. LACTULOSE [Concomitant]
     Dosage: 20 GRAM
     Route: 048
  37. VELCADE [Suspect]
     Route: 065
     Dates: start: 20100628
  38. VELCADE [Suspect]
     Route: 065
     Dates: start: 20100823
  39. VESICARE [Concomitant]
     Dosage: 5 MILLIGRAM
     Route: 065
  40. FIBER LAXATIVE [Concomitant]
     Route: 065
  41. MS CONTIN [Concomitant]
     Dosage: 30 MILLIGRAM
     Route: 048
  42. REVLIMID [Suspect]
     Indication: MULTIPLE MYELOMA
     Dosage: 25 MILLIGRAM
     Route: 048
     Dates: start: 20100201, end: 20100901
  43. VELCADE [Suspect]
     Route: 065
     Dates: start: 20100902
  44. SERTRALINE HYDROCHLORIDE [Concomitant]
     Dosage: 50 MILLIGRAM
     Route: 065
  45. TIZANIDINE HCL [Concomitant]
     Indication: PAIN
     Dosage: 4 MILLIGRAM
     Route: 065
  46. WARFARIN SODIUM [Concomitant]
     Dosage: 5 MILLIGRAM
     Route: 065
  47. LORTAB [Concomitant]
     Indication: BREAKTHROUGH PAIN
     Route: 065
  48. MORPHINE [Concomitant]
     Dosage: 30 MILLIGRAM
     Route: 048
  49. VELCADE [Suspect]
     Route: 065
     Dates: start: 20100722
  50. VELCADE [Suspect]
     Route: 065
     Dates: start: 20100913
  51. VELCADE [Suspect]
     Route: 065
     Dates: start: 20100916
  52. SIMETHICONE [Concomitant]
     Dosage: 125 MILLIGRAM
     Route: 048
  53. AMITIZA [Concomitant]
     Dosage: 24 MICROGRAM
     Route: 065
  54. OXYBUTYNIN CHLORIDE [Concomitant]
     Dosage: 5 MILLIGRAM
     Route: 065
  55. PRANDIN [Concomitant]
     Dosage: .5 MILLIGRAM
     Route: 048
  56. VELCADE [Suspect]
     Route: 065
     Dates: start: 20100929
  57. CITRATE OF MAGNESIA [Concomitant]
     Dosage: 1 CAPFUL
     Route: 065
  58. LOVENOX [Concomitant]
     Dosage: 100 MILLIGRAM/MILLILITERS
     Route: 065
  59. ALLOPURINOL [Concomitant]
     Dosage: 300 MILLIGRAM
     Route: 065
  60. PLATELETS [Concomitant]
     Route: 065

REACTIONS (10)
  - DEEP VEIN THROMBOSIS [None]
  - MONOCLONAL IMMUNOGLOBULIN PRESENT [None]
  - CONSTIPATION [None]
  - THROMBOSIS [None]
  - MULTIPLE MYELOMA [None]
  - NEUTROPENIA [None]
  - PAIN IN EXTREMITY [None]
  - THROMBOCYTOPENIA [None]
  - URINARY TRACT INFECTION [None]
  - HAEMOGLOBIN DECREASED [None]
